FAERS Safety Report 9820763 (Version 1)
Quarter: 2014Q1

REPORT INFORMATION
  Report Type: Spontaneous
  Country: US (occurrence: None)
  Receive Date: 20140114
  Receipt Date: 20140114
  Transmission Date: 20141002
  Serious: Yes (Hospitalization, Other)
  Sender: FDA-Public Use
  Company Number: None

PATIENT
  Age: 46 Year
  Sex: Male
  Weight: 124.74 kg

DRUGS (1)
  1. ANDROGEL [Suspect]
     Indication: ASTHENIA

REACTIONS (2)
  - Transient ischaemic attack [None]
  - Visual field defect [None]
